FAERS Safety Report 7836130-1 (Version None)
Quarter: 2011Q4

REPORT INFORMATION
  Report Type: 
  Country: None (occurrence: None)
  Receive Date: 20111024
  Receipt Date: 20111020
  Transmission Date: 20120403
  Serious: Yes (Life-Threatening, Hospitalization, Other)
  Sender: FDA-Public Use
  Company Number: US-B.I. PHARMACEUTICALS,INC./RIDGEFIELD-2011-BP-22626BP

PATIENT
  Age: 53 Year
  Sex: Female
  Weight: 136.08 kg

DRUGS (1)
  1. PRADAXA [Suspect]
     Dosage: 300 MG
     Route: 048
     Dates: start: 20110603, end: 20110710

REACTIONS (2)
  - HAEMORRHAGE [None]
  - PERICARDIAL HAEMORRHAGE [None]
